FAERS Safety Report 16151650 (Version 1)
Quarter: 2019Q2

REPORT INFORMATION
  Report Type: Spontaneous
  Country: CN (occurrence: CN)
  Receive Date: 20190403
  Receipt Date: 20190403
  Transmission Date: 20190711
  Serious: Yes (Other)
  Sender: FDA-Public Use
  Company Number: CN-PFIZER INC-2019128894

PATIENT
  Age: 58 Year
  Sex: Female
  Weight: 64 kg

DRUGS (3)
  1. EN BI PU [Suspect]
     Active Substance: DIBUTYL PHTHALATE
     Indication: CEREBRAL INFARCTION
     Dosage: 0.2 DF, 3X/DAY
     Route: 048
     Dates: start: 20190101, end: 20190227
  2. LIPITOR [Suspect]
     Active Substance: ATORVASTATIN CALCIUM
     Indication: LIPIDS ABNORMAL
     Dosage: 20.0 MG, 1X/DAY
     Route: 048
     Dates: start: 20181213, end: 20190305
  3. RIVAROXABAN [Suspect]
     Active Substance: RIVAROXABAN
     Indication: COAGULOPATHY
     Dosage: 100 MG, 1X/DAY
     Route: 048
     Dates: start: 20190116, end: 20190305

REACTIONS (4)
  - Venous thrombosis [Unknown]
  - Fatigue [Recovering/Resolving]
  - Decreased appetite [Recovering/Resolving]
  - Hepatic failure [Recovering/Resolving]

NARRATIVE: CASE EVENT DATE: 20190305
